FAERS Safety Report 7331592-0 (Version None)
Quarter: 2011Q1

REPORT INFORMATION
  Report Type: 
  Country: None (occurrence: None)
  Receive Date: 20110304
  Receipt Date: 20110110
  Transmission Date: 20110831
  Serious: No
  Sender: FDA-Public Use
  Company Number: A0904958A

PATIENT
  Age: 22 Year
  Sex: Female

DRUGS (2)
  1. LAMICTAL [Suspect]
     Indication: DEPRESSION
     Dosage: 100MG PER DAY
     Route: 048
     Dates: start: 20101101, end: 20110101
  2. INSULIN [Concomitant]

REACTIONS (2)
  - RASH PRURITIC [None]
  - RASH ERYTHEMATOUS [None]
